FAERS Safety Report 6556855-8 (Version None)
Quarter: 2010Q1

REPORT INFORMATION
  Report Type: 
  Country: None (occurrence: None)
  Receive Date: 20100128
  Receipt Date: 20100122
  Transmission Date: 20100710
  Serious: Yes (Death, Other)
  Sender: FDA-Public Use
  Company Number: PHBS2005SE05545

PATIENT
  Age: 10 Year
  Sex: Male

DRUGS (1)
  1. CYCLOSPORINE [Suspect]
     Indication: STEM CELL TRANSPLANT
     Route: 065

REACTIONS (16)
  - ACANTHAMOEBA INFECTION [None]
  - ACTINOMYCOSIS [None]
  - BONE MARROW TRANSPLANT REJECTION [None]
  - CONFUSIONAL STATE [None]
  - CONVULSION [None]
  - CSF PROTEIN INCREASED [None]
  - DEPRESSED LEVEL OF CONSCIOUSNESS [None]
  - FUNGAL TEST POSITIVE [None]
  - HALLUCINATION, VISUAL [None]
  - HYPERNATRAEMIA [None]
  - MENINGOENCEPHALITIS AMOEBIC [None]
  - MULTI-ORGAN FAILURE [None]
  - PLEOCYTOSIS [None]
  - SINUS ANTROSTOMY [None]
  - SINUS CONGESTION [None]
  - STEM CELL TRANSPLANT [None]
